FAERS Safety Report 24164889 (Version 1)
Quarter: 2024Q3

REPORT INFORMATION
  Report Type: Spontaneous
  Country: US (occurrence: US)
  Receive Date: 20240801
  Receipt Date: 20240801
  Transmission Date: 20241017
  Serious: No
  Sender: MERCK
  Company Number: US-009507513-2407USA001170

PATIENT
  Sex: Female

DRUGS (1)
  1. KEYTRUDA [Suspect]
     Active Substance: PEMBROLIZUMAB
     Indication: Triple negative breast cancer
     Dosage: 200 MILLIGRAM, Q3W
     Route: 042

REACTIONS (7)
  - Arthralgia [Unknown]
  - Urinary tract infection [Unknown]
  - Decreased appetite [Unknown]
  - Illness [Unknown]
  - Cough [Unknown]
  - Poor quality sleep [Unknown]
  - Immune system disorder [Unknown]
